FAERS Safety Report 5135325-8 (Version None)
Quarter: 2006Q4

REPORT INFORMATION
  Report Type: 
  Country: None (occurrence: None)
  Receive Date: 20061026
  Receipt Date: 20060615
  Transmission Date: 20070319
  Serious: Yes (Hospitalization, Other)
  Sender: FDA-Public Use
  Company Number: US-AMGEN-US183167

PATIENT
  Sex: Female

DRUGS (10)
  1. EPOGEN [Suspect]
     Indication: DIALYSIS
     Route: 042
     Dates: start: 20050401
  2. FOLIC ACID [Concomitant]
     Route: 065
  3. ASCORBIC ACID [Concomitant]
     Route: 065
  4. ZINC SULFATE [Concomitant]
     Route: 065
  5. MULTIPLE VITAMIN [Concomitant]
     Route: 065
  6. COREG [Concomitant]
     Route: 065
  7. PHOSLO [Concomitant]
     Route: 065
  8. RENAGEL [Concomitant]
     Route: 065
  9. MEGACE [Concomitant]
     Route: 065
  10. ULTRAM [Concomitant]
     Route: 065

REACTIONS (3)
  - CATHETER SITE HAEMORRHAGE [None]
  - SPLENECTOMY [None]
  - THERAPEUTIC RESPONSE DECREASED [None]
